FAERS Safety Report 6509881-9 (Version None)
Quarter: 2009Q4

REPORT INFORMATION
  Report Type: 
  Country: None (occurrence: None)
  Receive Date: 20091222
  Receipt Date: 20091216
  Transmission Date: 20100525
  Serious: Yes (Other)
  Sender: FDA-Public Use
  Company Number: US-BAYER-200917660BCC

PATIENT
  Age: 21 Year
  Sex: Female
  Weight: 53 kg

DRUGS (2)
  1. MIDOL [Suspect]
     Indication: MENSTRUAL DISORDER
     Dosage: UNIT DOSE: 220 MG
     Route: 048
     Dates: start: 20090401
  2. ASPIRIN [Suspect]

REACTIONS (5)
  - DYSPNOEA [None]
  - EYELID OEDEMA [None]
  - HYPERSENSITIVITY [None]
  - PRURITUS GENERALISED [None]
  - URTICARIA [None]
